FAERS Safety Report 9714251 (Version 2)
Quarter: 2013Q4

REPORT INFORMATION
  Report Type: Spontaneous
  Country: US (occurrence: US)
  Receive Date: 20131126
  Receipt Date: 20131126
  Transmission Date: 20140711
  Serious: No
  Sender: FDA-Public Use
  Company Number: US-GILEAD-2008-0019380

PATIENT
  Sex: Female
  Weight: 81.19 kg

DRUGS (17)
  1. LETAIRIS [Suspect]
     Indication: PULMONARY ARTERIAL HYPERTENSION
     Route: 048
     Dates: start: 20080130
  2. COUMADIN [Concomitant]
  3. OXYGEN [Concomitant]
  4. LASIX [Concomitant]
  5. ISOSORBIDE [Concomitant]
  6. FLUOXETINE [Concomitant]
  7. LIPITOR [Concomitant]
  8. SYNTHROID [Concomitant]
  9. STARLIX [Concomitant]
  10. FOLIC ACID [Concomitant]
  11. METFORMIN HCL [Concomitant]
  12. ALBUTEROL [Concomitant]
  13. HYDRALAZINE [Concomitant]
  14. PRILOSEC [Concomitant]
  15. SPIRONOLACTONE [Concomitant]
  16. TYLENOL [Concomitant]
  17. POTASSIUM [Concomitant]

REACTIONS (1)
  - Heart rate irregular [Unknown]
